FAERS Safety Report 5819424-0 (Version None)
Quarter: 2008Q3

REPORT INFORMATION
  Report Type: 
  Country: None (occurrence: None)
  Receive Date: 20080723
  Receipt Date: 20080716
  Transmission Date: 20090109
  Serious: Yes (Hospitalization)
  Sender: FDA-Public Use
  Company Number: AU-AMGEN-US260093

PATIENT
  Sex: Female

DRUGS (21)
  1. DARBEPOETIN ALFA [Suspect]
     Indication: ANAEMIA OF MALIGNANT DISEASE
     Route: 058
     Dates: start: 20060622, end: 20060810
  2. NEULASTA [Suspect]
     Indication: CHEMOTHERAPY
     Route: 058
     Dates: start: 20060609, end: 20060922
  3. CYCLOPHOSPHAMIDE [Suspect]
     Route: 042
  4. DAUNORUBICIN [Suspect]
     Route: 042
  5. VINCRISTINE [Suspect]
     Route: 042
  6. PREDNISOLONE [Concomitant]
     Route: 048
  7. ELSPAR [Concomitant]
  8. ACETAMINOPHEN [Concomitant]
  9. ZOFRAN [Concomitant]
     Route: 042
  10. ATIVAN [Concomitant]
     Route: 048
  11. MAXOLON [Concomitant]
     Route: 042
  12. KEFLEX [Concomitant]
     Route: 048
  13. NILSTAT [Concomitant]
     Route: 048
  14. ALLOPURINOL [Concomitant]
     Route: 048
  15. CEFTAZIDIME [Concomitant]
     Route: 042
  16. GENTAMICIN [Concomitant]
     Route: 042
  17. FLUCONAZOLE [Concomitant]
     Route: 048
  18. MOVICOL [Concomitant]
  19. LACTULOSE [Concomitant]
  20. TAMOXIFEN CITRATE [Concomitant]
     Dates: start: 20070301
  21. CALTRATE [Concomitant]

REACTIONS (2)
  - ACUTE LYMPHOCYTIC LEUKAEMIA [None]
  - PANCYTOPENIA [None]
